FAERS Safety Report 15759197 (Version 2)
Quarter: 2019Q1

REPORT INFORMATION
  Report Type: Report from Study
  Country: US (occurrence: US)
  Receive Date: 20181226
  Receipt Date: 20190108
  Transmission Date: 20190417
  Serious: Yes (Hospitalization, Other)
  Sender: FDA-Public Use
  Company Number: PHHY2018US194040

PATIENT
  Age: 62 Year
  Sex: Male

DRUGS (13)
  1. CIPRO [Concomitant]
     Active Substance: CIPROFLOXACIN HYDROCHLORIDE
     Indication: URINARY RETENTION
     Dosage: 500 MG, BID
     Route: 065
     Dates: start: 20180813, end: 20180911
  2. LOMOTIL [Concomitant]
     Active Substance: ATROPINE SULFATE\DIPHENOXYLATE HYDROCHLORIDE
     Indication: DIARRHOEA
     Dosage: FOUR TIMES DAILY, PRN
     Route: 065
     Dates: start: 201802
  3. ELIQUIS [Concomitant]
     Active Substance: APIXABAN
     Indication: ATRIAL FIBRILLATION
     Dosage: 5 MG, BID
     Route: 065
     Dates: start: 2013
  4. TAMBOCOR [Concomitant]
     Active Substance: FLECAINIDE ACETATE
     Indication: ATRIAL FIBRILLATION
     Dosage: 150 MG, BID
     Route: 065
     Dates: start: 2013
  5. NORVASC [Concomitant]
     Active Substance: AMLODIPINE BESYLATE
     Indication: HYPERTENSION
     Dosage: 10 MG, QD
     Route: 065
     Dates: start: 2010
  6. ZOFRAN [Concomitant]
     Active Substance: ONDANSETRON HYDROCHLORIDE
     Indication: NAUSEA
     Dosage: UNK UNK, PRN
     Route: 065
     Dates: start: 20171113
  7. CRESTOR [Concomitant]
     Active Substance: ROSUVASTATIN CALCIUM
     Indication: HYPERLIPIDAEMIA
     Dosage: 1 DF, QD
     Route: 065
     Dates: start: 2010
  8. XANAX [Concomitant]
     Active Substance: ALPRAZOLAM
     Indication: INSOMNIA
     Dosage: 0.25 MG, QD (AT NIGHT)
     Route: 065
     Dates: start: 2016
  9. AFINITOR [Suspect]
     Active Substance: EVEROLIMUS
     Indication: METASTATIC RENAL CELL CARCINOMA
     Dosage: 10 MG, QD
     Route: 048
     Dates: start: 20180918, end: 20181112
  10. NEURONTIN [Concomitant]
     Active Substance: GABAPENTIN
     Indication: MUSCLE SPASMS
     Dosage: 300 MG, UNK
     Route: 065
     Dates: start: 2016
  11. TYLENOL [Concomitant]
     Active Substance: ACETAMINOPHEN
     Indication: BACK PAIN
     Dosage: 1000 MG, BID
     Route: 065
     Dates: start: 2015
  12. LIORESAL [Concomitant]
     Active Substance: BACLOFEN
     Indication: MUSCLE SPASMS
     Dosage: 20 MG, TID
     Dates: start: 2016
  13. MULTI VITAMIN [Concomitant]
     Active Substance: VITAMINS
     Indication: MUSCLE SPASMS
     Dosage: (EVERY MORNIING) QD
     Route: 065
     Dates: start: 2008

REACTIONS (8)
  - Anaemia [Recovered/Resolved]
  - Malignant neoplasm progression [Unknown]
  - Renal cell carcinoma [Unknown]
  - Dizziness [Recovered/Resolved]
  - Post procedural infection [Unknown]
  - Dyspnoea [Unknown]
  - Urinary tract infection pseudomonal [Unknown]
  - Asthenia [Unknown]

NARRATIVE: CASE EVENT DATE: 20181127
